FAERS Safety Report 10012208 (Version 1)
Quarter: 2014Q1

REPORT INFORMATION
  Report Type: Spontaneous
  Country: US (occurrence: None)
  Receive Date: 20140313
  Receipt Date: 20140313
  Transmission Date: 20141002
  Serious: Yes (Other)
  Sender: FDA-Public Use
  Company Number: None

PATIENT
  Age: 73 Year
  Sex: Female
  Weight: 117.48 kg

DRUGS (5)
  1. OXYBUTYNIN [Suspect]
     Indication: INCONTINENCE
  2. AMLODIPINE [Concomitant]
  3. ENLAPRIL [Concomitant]
  4. WARFARIN [Concomitant]
  5. CEPHALEXIN [Concomitant]

REACTIONS (8)
  - Vision blurred [None]
  - Eyelid margin crusting [None]
  - Dry mouth [None]
  - Dry throat [None]
  - Choking [None]
  - Constipation [None]
  - Photophobia [None]
  - Haemorrhage [None]
